FAERS Safety Report 6068192-9 (Version None)
Quarter: 2009Q1

REPORT INFORMATION
  Report Type: 
  Country: None (occurrence: None)
  Receive Date: 20090206
  Receipt Date: 20090129
  Transmission Date: 20090719
  Serious: Yes (Hospitalization)
  Sender: FDA-Public Use
  Company Number: US-BAYER-200910824NA

PATIENT
  Age: 40 Year
  Sex: Female

DRUGS (5)
  1. AVELOX [Suspect]
     Indication: PNEUMONIA
     Dosage: TOTAL DAILY DOSE: 400 MG  UNIT DOSE: 400 MG
     Dates: start: 20081230, end: 20090104
  2. IBUPROFEN [Concomitant]
  3. ALBUTEROL [Concomitant]
     Route: 055
  4. HYCODAN [Concomitant]
  5. LEVOTHYROXINE SODIUM [Concomitant]

REACTIONS (6)
  - CARDIOMYOPATHY [None]
  - COUGH [None]
  - DYSPNOEA [None]
  - PULMONARY OEDEMA [None]
  - RESPIRATORY FAILURE [None]
  - VIRAL MYOCARDITIS [None]
